FAERS Safety Report 13477691 (Version 1)
Quarter: 2017Q2

REPORT INFORMATION
  Report Type: Spontaneous
  Country: US (occurrence: US)
  Receive Date: 20170425
  Receipt Date: 20170425
  Transmission Date: 20170830
  Serious: Yes (Death)
  Sender: FDA-Public Use
  Company Number: None

PATIENT
  Age: 48 Year
  Sex: Male
  Weight: 63 kg

DRUGS (2)
  1. HIGH BLOOD PRESSURE MEDS [Concomitant]
  2. CHANTIX [Suspect]
     Active Substance: VARENICLINE TARTRATE
     Indication: SMOKING CESSATION THERAPY
     Dates: start: 20161210, end: 20170309

REACTIONS (1)
  - Completed suicide [None]

NARRATIVE: CASE EVENT DATE: 20170308
